FAERS Safety Report 5460650-0 (Version None)
Quarter: 2007Q3

REPORT INFORMATION
  Report Type: 
  Country: None (occurrence: None)
  Receive Date: 20070919
  Receipt Date: 20070907
  Transmission Date: 20080115
  Serious: Yes (Hospitalization, Other)
  Sender: FDA-Public Use
  Company Number: JP-PFIZER INC-2007057018

PATIENT
  Sex: Male

DRUGS (4)
  1. MIGLITOL TABLET [Suspect]
     Indication: DIABETES MELLITUS
     Dosage: DAILY DOSE:75MG
     Route: 048
     Dates: start: 20070518, end: 20070615
  2. THIATON [Suspect]
     Indication: ENTERITIS INFECTIOUS
     Dosage: DAILY DOSE:30MG
     Route: 048
     Dates: start: 20070611, end: 20070612
  3. BIOFERMIN [Concomitant]
     Indication: ENTERITIS INFECTIOUS
     Dosage: DAILY DOSE:3GRAM
     Route: 048
     Dates: start: 20070611, end: 20070612
  4. LEVOFLOXACIN [Concomitant]
     Indication: ENTERITIS INFECTIOUS
     Dosage: DAILY DOSE:300MG
     Route: 048
     Dates: start: 20070611, end: 20070612

REACTIONS (3)
  - ABDOMINAL PAIN [None]
  - ILEUS [None]
  - INTESTINAL OBSTRUCTION [None]
